FAERS Safety Report 24748642 (Version 1)
Quarter: 2024Q4

REPORT INFORMATION
  Report Type: Other
  Country: AR (occurrence: AR)
  Receive Date: 20241218
  Receipt Date: 20241218
  Transmission Date: 20250115
  Serious: Yes (Other)
  Sender: EYWA PHARMA INC.
  Company Number: AR-Eywa Pharma Inc.-2167358

PATIENT
  Age: 15 Year
  Sex: Male

DRUGS (6)
  1. VALPROIC ACID [Suspect]
     Active Substance: VALPROIC ACID
     Indication: Product used for unknown indication
  2. RUFINAMIDE [Concomitant]
     Active Substance: RUFINAMIDE
  3. CLONAZEPAM [Concomitant]
     Active Substance: CLONAZEPAM
  4. ARIPIPRAZOLE [Concomitant]
     Active Substance: ARIPIPRAZOLE
  5. RISPERIDONE [Concomitant]
     Active Substance: RISPERIDONE
  6. Sulthiamine [Concomitant]

REACTIONS (1)
  - Colitis microscopic [Recovered/Resolved]
